FAERS Safety Report 8505299-8 (Version None)
Quarter: 2012Q3

REPORT INFORMATION
  Report Type: 
  Country: None (occurrence: None)
  Receive Date: 20120712
  Receipt Date: 20120703
  Transmission Date: 20120928
  Serious: Yes (Hospitalization)
  Sender: FDA-Public Use
  Company Number: CA-JNJFOC-20120701578

PATIENT
  Sex: Male
  Weight: 73.6 kg

DRUGS (2)
  1. REMICADE [Suspect]
     Indication: CROHN'S DISEASE
     Route: 042
     Dates: start: 20120523
  2. REMICADE [Suspect]
     Route: 042
     Dates: start: 20090901

REACTIONS (1)
  - CHOLECYSTECTOMY [None]
